FAERS Safety Report 20819304 (Version 3)
Quarter: 2022Q2

REPORT INFORMATION
  Report Type: Spontaneous
  Country: US (occurrence: US)
  Receive Date: 20220512
  Receipt Date: 20220609
  Transmission Date: 20220721
  Serious: Yes (Hospitalization, Other)
  Sender: FDA-Public Use
  Company Number: US-VERTEX PHARMACEUTICALS-2022-006487

PATIENT
  Sex: Female

DRUGS (1)
  1. TRIKAFTA [Suspect]
     Active Substance: ELEXACAFTOR\IVACAFTOR\TEZACAFTOR
     Indication: Cystic fibrosis
     Dosage: 2 ORANGE TABS,AM/1 BLUE TAB,PM, FULL DOSE
     Route: 048

REACTIONS (10)
  - Alanine aminotransferase increased [Recovered/Resolved]
  - Aspartate aminotransferase increased [Recovered/Resolved]
  - Pre-eclampsia [Recovered/Resolved]
  - Vanishing twin syndrome [Unknown]
  - Acute kidney injury [Recovered/Resolved]
  - Exposure during pregnancy [Unknown]
  - Uterine contractions during pregnancy [Recovered/Resolved]
  - Cystic fibrosis related diabetes [Unknown]
  - Haemorrhage [Unknown]
  - Blood alkaline phosphatase increased [Recovered/Resolved]

NARRATIVE: CASE EVENT DATE: 20220101
